FAERS Safety Report 6794089-2 (Version None)
Quarter: 2010Q2

REPORT INFORMATION
  Report Type: 
  Country: None (occurrence: None)
  Receive Date: 20100624
  Receipt Date: 20091231
  Transmission Date: 20101027
  Serious: No
  Sender: FDA-Public Use
  Company Number: US-PFIZER INC-2010000232

PATIENT
  Sex: Male

DRUGS (3)
  1. RELPAX [Suspect]
     Dosage: UNK
  2. TRAZODONE HCL [Suspect]
     Dosage: UNK
  3. DEMEROL [Suspect]
     Dosage: UNK

REACTIONS (1)
  - DRUG INEFFECTIVE [None]
